FAERS Safety Report 13745594 (Version 1)
Quarter: 2017Q3

REPORT INFORMATION
  Report Type: Spontaneous
  Country: RU (occurrence: RU)
  Receive Date: 20170712
  Receipt Date: 20170712
  Transmission Date: 20171127
  Serious: Yes (Hospitalization, Other)
  Sender: FDA-Public Use
  Company Number: RU-IMPAX LABORATORIES, INC-2017-IPXL-02020

PATIENT
  Age: 55 Year
  Sex: Male
  Weight: 87 kg

DRUGS (5)
  1. TENECTEPLASE [Concomitant]
     Active Substance: TENECTEPLASE
     Indication: CARDIO-RESPIRATORY ARREST
     Dosage: 45 MG, 1 ONLY
     Route: 042
  2. ADRENACLICK [Suspect]
     Active Substance: EPINEPHRINE
     Indication: CARDIO-RESPIRATORY ARREST
     Dosage: 5 MG, UNK
     Route: 065
  3. AMIODARONE [Concomitant]
     Active Substance: AMIODARONE
     Indication: CARDIO-RESPIRATORY ARREST
     Dosage: 450 MG, UNK
     Route: 065
  4. TENECTEPLASE [Concomitant]
     Active Substance: TENECTEPLASE
     Dosage: 45 MG (SECOND DOSE), 1 ONLY
     Route: 042
  5. HEPARIN [Concomitant]
     Active Substance: HEPARIN SODIUM
     Indication: CARDIO-RESPIRATORY ARREST
     Dosage: INFUSION, UNK
     Route: 050

REACTIONS (2)
  - Drug ineffective [Recovered/Resolved]
  - Acute kidney injury [Recovered/Resolved]
